FAERS Safety Report 11889036 (Version 1)
Quarter: 2016Q1

REPORT INFORMATION
  Report Type: Spontaneous
  Country: US (occurrence: None)
  Receive Date: 20160104
  Receipt Date: 20160104
  Transmission Date: 20160526
  Serious: Yes (Life-Threatening, Hospitalization)
  Sender: FDA-Public Use
  Company Number: None

PATIENT
  Age: 64 Year
  Sex: Male
  Weight: 70 kg

DRUGS (1)
  1. CETUXIMAB [Suspect]
     Active Substance: CETUXIMAB
     Indication: CHEMOTHERAPY
     Route: 042
     Dates: start: 20150812, end: 20150812

REACTIONS (3)
  - Hypotension [None]
  - Infusion related reaction [None]
  - Respiratory distress [None]

NARRATIVE: CASE EVENT DATE: 20150812
